FAERS Safety Report 8132330 (Version 5)
Quarter: 2015Q3

REPORT INFORMATION
  Report Type: Spontaneous
  Country: US (occurrence: US)
  Receive Date: 20110913
  Receipt Date: 20150803
  Transmission Date: 20151125
  Serious: Yes (Hospitalization, Other)
  Sender: FDA-Public Use
  Company Number: US-AMGEN-USASP2011045612

PATIENT
  Age: 70 Year
  Sex: Male

DRUGS (19)
  1. ENBREL [Suspect]
     Active Substance: ETANERCEPT
     Indication: RHEUMATOID ARTHRITIS
     Dosage: 50 MG, QWK
     Route: 065
     Dates: start: 20050401, end: 201507
  2. LEVSIN [Suspect]
     Active Substance: HYOSCYAMINE SULFATE
     Indication: SEIZURE
     Dosage: UNK
     Route: 065
  3. DIGOXIN. [Concomitant]
     Active Substance: DIGOXIN
     Dosage: 0.25 MG, DAILY
     Route: 048
  4. CIALIS [Concomitant]
     Active Substance: TADALAFIL
     Dosage: 20 MG EVERY DAY AS NEEDED
     Route: 048
  5. NITROGLYCERIN. [Concomitant]
     Active Substance: NITROGLYCERIN
     Indication: CHEST PAIN
     Dosage: 0.4 MG, UNK
     Route: 060
  6. PLAVIX [Concomitant]
     Active Substance: CLOPIDOGREL BISULFATE
     Dosage: UNK
  7. ENBREL [Suspect]
     Active Substance: ETANERCEPT
     Dosage: UNK
     Route: 065
  8. TERAZOSIN [Concomitant]
     Active Substance: TERAZOSIN\TERAZOSIN HYDROCHLORIDE
     Dosage: 2 MG, AT BEDTIME
  9. HYDROCODONE BITARTRATE AND ACETAMINOPHEN [Concomitant]
     Active Substance: ACETAMINOPHEN\HYDROCODONE BITARTRATE
     Indication: PAIN
     Dosage: UNK UNK, QID
  10. KEPPRA [Concomitant]
     Active Substance: LEVETIRACETAM
     Dosage: 500 MG, BID
     Route: 048
  11. FOLIC ACID. [Concomitant]
     Active Substance: FOLIC ACID
     Dosage: 800 MUG, DAILY
  12. METOPROLOL SUCCINATE. [Concomitant]
     Active Substance: METOPROLOL SUCCINATE
     Dosage: 200 MG, DAILY
  13. CLOPIDOGREL [Concomitant]
     Active Substance: CLOPIDOGREL BISULFATE
     Dosage: 75 MG, QD
     Route: 048
  14. TEMAZEPAM. [Concomitant]
     Active Substance: TEMAZEPAM
     Dosage: 15 MG, AT BED TIME
  15. OMEPRAZOLE. [Concomitant]
     Active Substance: OMEPRAZOLE
     Dosage: 20 MG, BID
  16. PREDNISONE. [Concomitant]
     Active Substance: PREDNISONE
     Dosage: 5 MG, UNK
     Route: 048
  17. ATORVASTATIN [Concomitant]
     Active Substance: ATORVASTATIN
     Dosage: 40 MG, QD
     Route: 048
  18. ENBREL [Suspect]
     Active Substance: ETANERCEPT
     Dosage: UNK
     Route: 065
  19. VITAMIN B12 [Concomitant]
     Active Substance: CYANOCOBALAMIN
     Dosage: 1000 MUG, QD

REACTIONS (38)
  - Pain [Unknown]
  - Cerebral artery occlusion [Unknown]
  - Hyperlipidaemia [Unknown]
  - Brain neoplasm [Not Recovered/Not Resolved]
  - Knee arthroplasty [Unknown]
  - Eye disorder [Not Recovered/Not Resolved]
  - Cerebrovascular accident [Unknown]
  - Pancreatitis [Unknown]
  - Fall [Recovered/Resolved]
  - Seizure [Unknown]
  - Arthralgia [Not Recovered/Not Resolved]
  - Fatigue [Unknown]
  - Gait disturbance [Unknown]
  - Spinal operation [Unknown]
  - Memory impairment [Not Recovered/Not Resolved]
  - Gastrooesophageal reflux disease [Unknown]
  - Ejection fraction abnormal [Unknown]
  - Impaired work ability [Unknown]
  - Adhesion [Recovered/Resolved]
  - Lacrimation increased [Not Recovered/Not Resolved]
  - Eye pain [Not Recovered/Not Resolved]
  - Joint dislocation [Unknown]
  - Arteriosclerosis coronary artery [Unknown]
  - Intervertebral disc degeneration [Unknown]
  - Meningioma [Unknown]
  - Pneumonia [Recovered/Resolved]
  - Osteoarthritis [Unknown]
  - Hemiplegia [Recovered/Resolved]
  - Upper limb fracture [Recovered/Resolved]
  - Rotator cuff syndrome [Unknown]
  - Dizziness [Not Recovered/Not Resolved]
  - Cardiomyopathy [Unknown]
  - Joint swelling [Unknown]
  - Joint range of motion decreased [Unknown]
  - Cardiac pacemaker insertion [Unknown]
  - Myocardial infarction [Unknown]
  - Implantable defibrillator insertion [Unknown]
  - Benign prostatic hyperplasia [Unknown]

NARRATIVE: CASE EVENT DATE: 2011
